FAERS Safety Report 8323132-4 (Version None)
Quarter: 2012Q2

REPORT INFORMATION
  Report Type: 
  Country: None (occurrence: None)
  Receive Date: 20120430
  Receipt Date: 20120425
  Transmission Date: 20120825
  Serious: Yes (Other)
  Sender: FDA-Public Use
  Company Number: PHHO2012US004768

PATIENT
  Sex: Female
  Weight: 55.329 kg

DRUGS (16)
  1. AFINITOR [Suspect]
     Indication: BREAST CANCER METASTATIC
     Dosage: 5 MG, UNK
     Route: 048
     Dates: start: 20110502, end: 20120309
  2. PHENERGAN [Concomitant]
     Indication: NAUSEA
     Dosage: 25 MG, PRN
     Dates: start: 20110918
  3. HYDROCORTISONE-NEOMYCIN-POLYMYXIN B [Concomitant]
     Indication: EAR PAIN
     Dosage: 1-2 DROPS, PRN
     Dates: start: 20120103, end: 20120101
  4. RELPAX [Concomitant]
     Indication: MIGRAINE
     Dosage: 40 MG, QD PRN
     Dates: start: 20020101
  5. NORVASC [Concomitant]
     Indication: HYPERTENSION
     Dosage: 5 MG, QD
     Route: 048
     Dates: start: 20120130
  6. ATIVAN [Concomitant]
     Indication: INSOMNIA
     Dosage: 0.5 MG, QHS PRN
     Dates: start: 20110411, end: 20120310
  7. TESSALON [Concomitant]
     Indication: COUGH
     Dosage: 200 MG, TID PRN
     Route: 048
     Dates: start: 20110801, end: 20120101
  8. DOXYCYCLINE [Concomitant]
     Indication: RASH
     Dosage: 100 MG, BID PRN
     Dates: start: 20110627
  9. PACLITAXEL [Suspect]
     Indication: BREAST CANCER METASTATIC
     Dosage: 126 MG (50 MG/M^2)
     Route: 042
     Dates: start: 20110502, end: 20111003
  10. IBUPROFEN [Concomitant]
     Indication: BACK PAIN
     Dosage: AS DIRECTED, PRN
     Dates: start: 20110825
  11. SIMVASTATIN [Concomitant]
     Indication: BLOOD CHOLESTEROL INCREASED
     Dosage: 10 MG, QD
     Route: 048
     Dates: start: 20120110
  12. COLACE [Concomitant]
     Indication: CONSTIPATION
     Dosage: 100 MG, QD, PRN
     Dates: start: 20110518, end: 20120101
  13. COMPARATOR TRASTUZUMAB [Suspect]
     Indication: BREAST CANCER METASTATIC
     Dosage: 114 MG, DAILY
     Route: 042
     Dates: start: 20110502, end: 20120305
  14. IMODIUM [Concomitant]
     Indication: DIARRHOEA
     Dosage: PRN
     Route: 048
     Dates: start: 20111022, end: 20120101
  15. MIRALAX [Concomitant]
     Indication: CONSTIPATION
     Dosage: 17 G, PRN
     Route: 048
     Dates: start: 20110518, end: 20120101
  16. METAMUCIL-2 [Concomitant]
     Indication: CONSTIPATION
     Dosage: AS DIRECTED, PRN
     Dates: start: 20110512, end: 20120101

REACTIONS (1)
  - METASTASES TO CENTRAL NERVOUS SYSTEM [None]
